FAERS Safety Report 7605082-1 (Version None)
Quarter: 2011Q3

REPORT INFORMATION
  Report Type: 
  Country: None (occurrence: None)
  Receive Date: 20110713
  Receipt Date: 20091120
  Transmission Date: 20111222
  Serious: Yes (Disabling, Other)
  Sender: FDA-Public Use
  Company Number: US-BAYER-200940880NA

PATIENT
  Age: 53 Year
  Sex: Female
  Weight: 75 kg

DRUGS (15)
  1. HEPARIN [Concomitant]
     Dosage: 30000 U, UNK
     Route: 042
     Dates: start: 20020712, end: 20020712
  2. METFORMIN HCL [Concomitant]
     Dosage: 500 MG, UNK
     Route: 048
  3. ESMOLOL [Concomitant]
     Dosage: UNK
     Route: 042
     Dates: start: 20020712, end: 20020712
  4. EPINEPHRINE [Concomitant]
     Dosage: 5-10 CC PER HOUR
     Route: 042
     Dates: start: 20020712, end: 20020712
  5. TRASYLOL [Suspect]
     Indication: PRODUCT USED FOR UNKNOWN INDICATION
     Dosage: UNK
     Route: 042
     Dates: start: 20020712, end: 20020712
  6. RED BLOOD CELLS [Concomitant]
     Dosage: 1 U, UNK
     Route: 042
     Dates: start: 20020712
  7. CONTRAST MEDIA [Concomitant]
     Indication: CATHETERISATION CARDIAC
     Dosage: 120 CC
     Dates: start: 20020711
  8. AGGRENOX [Concomitant]
     Dosage: UNK UNK, BID
     Route: 048
     Dates: start: 20020417
  9. LABETALOL HCL [Concomitant]
     Dosage: 100 MG, UNK
     Route: 048
  10. ACETYLSALICYLIC ACID SRT [Concomitant]
     Dosage: 81-325 MG
     Route: 048
  11. ANCEF [Concomitant]
     Dosage: 1 G, UNK
     Route: 042
     Dates: start: 20020712, end: 20020712
  12. NITROGLYCERIN [Concomitant]
     Dosage: 30 CC/HOUR
     Route: 042
     Dates: start: 20020712, end: 20020712
  13. LASIX [Concomitant]
     Dosage: 40 MG, UNK
     Route: 048
  14. PROTAMINE SULFATE [Concomitant]
     Dosage: 450 CC
     Route: 042
     Dates: start: 20020712, end: 20020712
  15. NORVASC [Concomitant]
     Dosage: 5 MG, UNK
     Route: 048

REACTIONS (12)
  - DEPRESSION [None]
  - PSYCHIATRIC SYMPTOM [None]
  - RENAL INJURY [None]
  - ANXIETY [None]
  - ANHEDONIA [None]
  - RENAL FAILURE [None]
  - MULTI-ORGAN FAILURE [None]
  - DISABILITY [None]
  - INJURY [None]
  - UNEVALUABLE EVENT [None]
  - FEAR [None]
  - PAIN [None]
